FAERS Safety Report 7560612-3 (Version None)
Quarter: 2011Q2

REPORT INFORMATION
  Report Type: 
  Country: None (occurrence: None)
  Receive Date: 20110621
  Receipt Date: 20101110
  Transmission Date: 20111010
  Serious: No
  Sender: FDA-Public Use
  Company Number: US-ASTRAZENECA-2010SE53605

PATIENT
  Age: 24137 Day
  Sex: Female
  Weight: 61.2 kg

DRUGS (3)
  1. ENTOCORT EC [Suspect]
     Indication: COLITIS
     Route: 048
     Dates: start: 20101105, end: 20101109
  2. ENTOCORT EC [Suspect]
     Route: 048
  3. SIMVASTATIN [Concomitant]

REACTIONS (5)
  - DIARRHOEA [None]
  - NAUSEA [None]
  - SYNCOPE [None]
  - MALAISE [None]
  - VOMITING [None]
